FAERS Safety Report 8970178 (Version 1)
Quarter: 2012Q4

REPORT INFORMATION
  Report Type: 
  Country: US (occurrence: US)
  Receive Date: 20121217
  Receipt Date: 20121217
  Transmission Date: 20130627
  Serious: No
  Sender: FDA-Public Use
  Company Number: US-PFIZER INC-2012316619

PATIENT
  Age: 51 Year
  Sex: Female
  Weight: 88.44 kg

DRUGS (6)
  1. LYRICA [Suspect]
     Indication: FIBROMYALGIA
     Dosage: 25 mg, 1x/day
     Dates: start: 20121030
  2. LYRICA [Suspect]
     Indication: PAIN
     Dosage: 50 mg, 1x/day
     Dates: start: 2012
  3. LYRICA [Suspect]
     Dosage: 100 mg, 1x/day
     Dates: start: 2012
  4. LYRICA [Suspect]
     Dosage: 50 mg, 3x/day
     Dates: start: 20121210
  5. PROAIR HFA [Concomitant]
     Indication: ASTHMA
     Dosage: as needed
  6. ADVAIR DISKUS [Concomitant]
     Indication: ASTHMA
     Dosage: at 250/50mg two times a day

REACTIONS (4)
  - Dyspnoea [Not Recovered/Not Resolved]
  - Anxiety [Not Recovered/Not Resolved]
  - Weight decreased [Unknown]
  - Dermatitis [Recovering/Resolving]
